FAERS Safety Report 4741646-0 (Version None)
Quarter: 2005Q3

REPORT INFORMATION
  Report Type: 
  Country: None (occurrence: None)
  Receive Date: 20050808
  Receipt Date: 20050729
  Transmission Date: 20060218
  Serious: Yes (Hospitalization)
  Sender: FDA-Public Use
  Company Number: 200510342BYL

PATIENT
  Age: 65 Year
  Sex: Male
  Weight: 72.5 kg

DRUGS (6)
  1. ASPIRIN [Suspect]
     Indication: CAROTID ARTERY STENOSIS
     Dosage: 100 MG, QD, ORAL
     Route: 048
     Dates: start: 20010222, end: 20050711
  2. ASPIRIN [Suspect]
     Indication: CEREBRAL INFARCTION
     Dosage: 100 MG, QD, ORAL
     Route: 048
     Dates: start: 20010222, end: 20050711
  3. PLETAL [Suspect]
     Indication: CAROTID ARTERY STENOSIS
     Dosage: 50 MG, BID, ORAL
     Route: 048
     Dates: start: 20030920, end: 20050711
  4. MEDET [Concomitant]
  5. EXCEGRAN [Concomitant]
  6. URINORM [Concomitant]

REACTIONS (1)
  - INTERSTITIAL LUNG DISEASE [None]
